FAERS Safety Report 18653896 (Version 1)
Quarter: 2020Q4

REPORT INFORMATION
  Report Type: Spontaneous
  Country: US (occurrence: US)
  Receive Date: 20201222
  Receipt Date: 20201222
  Transmission Date: 20210114
  Serious: Yes (Disabling)
  Sender: FDA-Public Use
  Company Number: None

PATIENT
  Age: 49 Year
  Sex: Female
  Weight: 54 kg

DRUGS (1)
  1. MEDROL [Suspect]
     Active Substance: METHYLPREDNISOLONE
     Indication: PLANTAR FASCIITIS
     Dosage: ?          QUANTITY:5 TABLET(S);OTHER FREQUENCY:DOSE PACK;?
     Route: 048

REACTIONS (2)
  - Back pain [None]
  - Neck pain [None]

NARRATIVE: CASE EVENT DATE: 20190412
